FAERS Safety Report 9454071 (Version 2)
Quarter: 2013Q3

REPORT INFORMATION
  Report Type: Report from Study
  Country: US (occurrence: US)
  Receive Date: 20130812
  Receipt Date: 20130923
  Transmission Date: 20140515
  Serious: Yes (Other)
  Sender: FDA-Public Use
  Company Number: US-ROCHE-1258473

PATIENT
  Age: 56 Year
  Sex: Female

DRUGS (4)
  1. AVASTIN [Suspect]
     Indication: MACULAR DEGENERATION
     Route: 031
  2. LIDOCAINE [Concomitant]
     Route: 057
  3. BETADINE [Concomitant]
     Route: 065
  4. TRAMADOL [Concomitant]
     Dosage: PRN
     Route: 048

REACTIONS (3)
  - Eye irritation [Unknown]
  - Lacrimation increased [Unknown]
  - Migraine [Unknown]
